FAERS Safety Report 9787860 (Version 2)
Quarter: 2014Q1

REPORT INFORMATION
  Report Type: Spontaneous
  Country: FR (occurrence: FR)
  Receive Date: 20131230
  Receipt Date: 20140228
  Transmission Date: 20141002
  Serious: Yes (Death, Hospitalization)
  Sender: FDA-Public Use
  Company Number: FR-JNJFOC-20131214745

PATIENT
  Age: 87 Year
  Sex: Female
  Weight: 36 kg

DRUGS (8)
  1. XARELTO [Suspect]
     Indication: CEREBROVASCULAR ACCIDENT PROPHYLAXIS
     Route: 048
     Dates: start: 20131009, end: 20131127
  2. XARELTO [Suspect]
     Indication: CEREBROVASCULAR ACCIDENT PROPHYLAXIS
     Route: 048
     Dates: start: 20130327, end: 20131009
  3. XARELTO [Suspect]
     Indication: ATRIAL FIBRILLATION
     Route: 048
     Dates: start: 20131009, end: 20131127
  4. XARELTO [Suspect]
     Indication: ATRIAL FIBRILLATION
     Route: 048
     Dates: start: 20130327, end: 20131009
  5. FOSAVANCE [Concomitant]
     Indication: OSTEOPOROSIS
     Route: 065
  6. INEXIUM [Concomitant]
     Route: 065
  7. TRIVASTAL [Concomitant]
     Route: 065
     Dates: end: 20131115
  8. CARDENSIEL [Concomitant]
     Route: 065

REACTIONS (3)
  - Ischaemic stroke [Fatal]
  - Pallor [Unknown]
  - Pain in extremity [Unknown]
